FAERS Safety Report 12172121 (Version 2)
Quarter: 2016Q2

REPORT INFORMATION
  Report Type: Spontaneous
  Country: CN (occurrence: CN)
  Receive Date: 20160311
  Receipt Date: 20160623
  Transmission Date: 20160815
  Serious: Yes (Hospitalization, Other)
  Sender: FDA-Public Use
  Company Number: CN-PFIZER INC-2016131485

PATIENT
  Sex: Male

DRUGS (2)
  1. XYNTHA [Suspect]
     Active Substance: ANTIHEMOPHILIC FACTOR, HUMAN RECOMBINANT RESIDUES 743-1636 DELETED
     Dosage: 2000 IU, 2X/DAY
     Route: 042
     Dates: start: 20160207, end: 20160219
  2. XYNTHA [Suspect]
     Active Substance: ANTIHEMOPHILIC FACTOR, HUMAN RECOMBINANT RESIDUES 743-1636 DELETED
     Indication: HAEMORRHAGE PROPHYLAXIS
     Dosage: 1000 IU, 2X/DAY
     Route: 042
     Dates: start: 20151215, end: 20160207

REACTIONS (4)
  - Haemorrhage [Recovered/Resolved]
  - Factor VIII inhibition [Recovered/Resolved]
  - Muscle haemorrhage [Unknown]
  - Oedema [Not Recovered/Not Resolved]

NARRATIVE: CASE EVENT DATE: 201601
